FAERS Safety Report 4591211-3 (Version None)
Quarter: 2005Q1

REPORT INFORMATION
  Report Type: 
  Country: None (occurrence: None)
  Receive Date: 20050225
  Receipt Date: 20041116
  Transmission Date: 20050727
  Serious: Yes (Hospitalization, Other)
  Sender: FDA-Public Use
  Company Number: US-MERCK-0411USA02837

PATIENT
  Age: 69 Year
  Sex: Female
  Weight: 107 kg

DRUGS (7)
  1. VIOXX [Suspect]
     Indication: ARTHRITIS
     Route: 048
     Dates: start: 20000301, end: 20000801
  2. VIOXX [Suspect]
     Route: 065
     Dates: start: 20000101
  3. VIOXX [Suspect]
     Indication: ARTHRALGIA
     Route: 048
     Dates: start: 20000301, end: 20000801
  4. VIOXX [Suspect]
     Route: 065
     Dates: start: 20000101
  5. NORVASC [Concomitant]
     Route: 065
  6. METOPROLOL [Concomitant]
     Route: 065
  7. [THERAPY UNSPECIFIED] [Concomitant]
     Route: 065

REACTIONS (4)
  - ARTHRALGIA [None]
  - ARTHROPATHY [None]
  - ATRIAL FIBRILLATION [None]
  - SELF-MEDICATION [None]
